FAERS Safety Report 4663356-0 (Version None)
Quarter: 2005Q2

REPORT INFORMATION
  Report Type: 
  Country: None (occurrence: None)
  Receive Date: 20050517
  Receipt Date: 20050510
  Transmission Date: 20051028
  Serious: Yes (Death)
  Sender: FDA-Public Use
  Company Number: US-JNJFOC-20050502344

PATIENT
  Age: 87 Year
  Sex: Female

DRUGS (3)
  1. FENTANYL [Suspect]
     Route: 062
  2. FENTANYL [Suspect]
     Route: 062
  3. ROXANOL [Concomitant]
     Indication: PAIN
     Route: 049

REACTIONS (2)
  - CARDIAC FAILURE CONGESTIVE [None]
  - DEMENTIA [None]
